FAERS Safety Report 5940036-2 (Version None)
Quarter: 2008Q4

REPORT INFORMATION
  Report Type: 
  Country: None (occurrence: None)
  Receive Date: 20081104
  Receipt Date: 20081027
  Transmission Date: 20090506
  Serious: Yes (Other)
  Sender: FDA-Public Use
  Company Number: PHHY2008BR26226

PATIENT
  Age: 16 Month
  Sex: Female
  Weight: 10 kg

DRUGS (2)
  1. TRILEPTAL [Suspect]
     Indication: POOR QUALITY SLEEP
     Dosage: 0.7 ML, BID
     Route: 048
  2. TRILEPTAL [Suspect]
     Dosage: 5 ML
     Dates: start: 20081027

REACTIONS (2)
  - INCORRECT DOSE ADMINISTERED [None]
  - NO ADVERSE EVENT [None]
